FAERS Safety Report 25231378 (Version 2)
Quarter: 2025Q2

REPORT INFORMATION
  Report Type: Spontaneous
  Country: US (occurrence: US)
  Receive Date: 20250423
  Receipt Date: 20250428
  Transmission Date: 20250717
  Serious: Yes (Other)
  Sender: PFIZER
  Company Number: US-PFIZER INC-PV202500047166

PATIENT
  Age: 66 Year
  Sex: Male

DRUGS (3)
  1. FLUCONAZOLE [Interacting]
     Active Substance: FLUCONAZOLE
  2. METHADONE [Interacting]
     Active Substance: METHADONE HYDROCHLORIDE
     Indication: Pain management
  3. HYDROMORPHONE HYDROCHLORIDE [Concomitant]
     Active Substance: HYDROMORPHONE HYDROCHLORIDE
     Indication: Pain management

REACTIONS (3)
  - Drug interaction [Unknown]
  - Analgesic drug level increased [Unknown]
  - Neurotoxicity [Unknown]
